FAERS Safety Report 5895424-X (Version None)
Quarter: 2008Q3

REPORT INFORMATION
  Report Type: 
  Country: None (occurrence: None)
  Receive Date: 20080922
  Receipt Date: 20080909
  Transmission Date: 20090109
  Serious: Yes (Other)
  Sender: FDA-Public Use
  Company Number: GXKR2008IN08593

PATIENT
  Age: 35 Year
  Sex: Male

DRUGS (3)
  1. PREDNISOLONE [Suspect]
     Indication: ERYTHEMA NODOSUM LEPROSUM
     Dosage: 40 MG, QD : 60 MG, QD
  2. THALIDOMIDE [Suspect]
     Indication: ERYTHEMA NODOSUM LEPROSUM
     Dosage: 300 MG, QD : 200 MG, QD : 100 MG, QD : 50 MG, QD
  3. WARFARIN SODIUM [Concomitant]

REACTIONS (13)
  - ARTHRALGIA [None]
  - CONDITION AGGRAVATED [None]
  - CUSHINGOID [None]
  - DACTYLITIS [None]
  - DEEP VEIN THROMBOSIS [None]
  - ERYTHEMA NODOSUM LEPROSUM [None]
  - LEUKOCYTOSIS [None]
  - MYALGIA [None]
  - NODULE [None]
  - OCULAR HYPERAEMIA [None]
  - RASH ERYTHEMATOUS [None]
  - SKIN NECROSIS [None]
  - TENDERNESS [None]
